FAERS Safety Report 13639201 (Version 1)
Quarter: 2017Q2

REPORT INFORMATION
  Report Type: Spontaneous
  Country: US (occurrence: US)
  Receive Date: 20170609
  Receipt Date: 20170609
  Transmission Date: 20170830
  Serious: No
  Sender: FDA-Public Use
  Company Number: US-ROCHE-1238713

PATIENT
  Sex: Female

DRUGS (2)
  1. KLONOPIN [Suspect]
     Active Substance: CLONAZEPAM
     Dosage: DOSE INCREASE EVERY DECADE; 1 MG/DAY
     Route: 048
  2. KLONOPIN [Suspect]
     Active Substance: CLONAZEPAM
     Indication: PANIC DISORDER
     Route: 048
     Dates: start: 1970

REACTIONS (8)
  - Disability [Unknown]
  - Agoraphobia [Unknown]
  - Schizophrenia [Unknown]
  - Sensory disturbance [Unknown]
  - Drug tolerance [Unknown]
  - Catatonia [Unknown]
  - Insomnia [Unknown]
  - Loss of personal independence in daily activities [Not Recovered/Not Resolved]
